FAERS Safety Report 6857002-5 (Version None)
Quarter: 2010Q3

REPORT INFORMATION
  Report Type: 
  Country: None (occurrence: None)
  Receive Date: 20100719
  Receipt Date: 20100712
  Transmission Date: 20110219
  Serious: Yes (Other)
  Sender: FDA-Public Use
  Company Number: A0869745A

PATIENT
  Age: 44 Year
  Sex: Male

DRUGS (4)
  1. ARIXTRA [Suspect]
     Dosage: 10MG PER DAY
     Route: 058
     Dates: start: 20090801
  2. OXYCODONE HCL [Concomitant]
  3. OXYCONTIN [Concomitant]
  4. ALPRAZOLAM [Concomitant]

REACTIONS (3)
  - DRUG INEFFECTIVE [None]
  - OEDEMA PERIPHERAL [None]
  - THROMBOSIS [None]
